FAERS Safety Report 5769040-4 (Version None)
Quarter: 2008Q2

REPORT INFORMATION
  Report Type: 
  Country: None (occurrence: None)
  Receive Date: 20080612
  Receipt Date: 20080317
  Transmission Date: 20081010
  Serious: No
  Sender: FDA-Public Use
  Company Number: US-ABBOTT-08P-163-0443324-00

PATIENT
  Sex: Female
  Weight: 102.72 kg

DRUGS (1)
  1. HUMIRA [Suspect]
     Indication: CROHN'S DISEASE
     Route: 058
     Dates: start: 20080120

REACTIONS (3)
  - CYSTITIS ESCHERICHIA [None]
  - PATHOGEN RESISTANCE [None]
  - URINARY TRACT INFECTION [None]
